FAERS Safety Report 9883702 (Version 1)
Quarter: 2014Q1

REPORT INFORMATION
  Report Type: Spontaneous
  Country: DE (occurrence: DE)
  Receive Date: 20140210
  Receipt Date: 20140210
  Transmission Date: 20141002
  Serious: Yes (Other)
  Sender: FDA-Public Use
  Company Number: DE-009507513-1402DEU002298

PATIENT
  Age: 61 Year
  Sex: Male
  Weight: 75 kg

DRUGS (5)
  1. SIMVASTATIN [Suspect]
     Indication: HYPERLIPIDAEMIA
     Dosage: DAILY DOSE 20MG
     Route: 048
     Dates: start: 20131024, end: 20131120
  2. RAMIPRIL COMP [Concomitant]
     Indication: HYPERTENSION
     Dosage: 1 DF DOSAGE FORM EVERY DAY
     Route: 048
  3. AMLODIPINE [Concomitant]
     Indication: HYPERTENSION
     Dosage: DAILY DOSE 15 MG
  4. METOHEXAL [Concomitant]
     Dosage: DAILY DOSE 100 MG
     Route: 048
  5. METFORMIN [Concomitant]
     Indication: DIABETES MELLITUS
     Dosage: DAILY DOSE 1500MG
     Route: 048

REACTIONS (1)
  - Blood pressure increased [Recovered/Resolved]
